FAERS Safety Report 7248412-5 (Version None)
Quarter: 2011Q1

REPORT INFORMATION
  Report Type: 
  Country: None (occurrence: None)
  Receive Date: 20110127
  Receipt Date: 20110118
  Transmission Date: 20110831
  Serious: Yes (Death, Other)
  Sender: FDA-Public Use
  Company Number: JP-CELGENEUS-087-21880-10091494

PATIENT
  Sex: Male
  Weight: 63.1 kg

DRUGS (13)
  1. MAGMITT [Concomitant]
     Route: 048
     Dates: start: 20100729, end: 20100804
  2. WARFARIN POTASSIUM [Concomitant]
     Route: 048
     Dates: start: 20100729, end: 20100730
  3. HEPARIN SODIUM [Concomitant]
     Route: 050
     Dates: start: 20100729, end: 20100730
  4. ISOTONIC SODIUM CHLORIDE SOLUTION [Concomitant]
     Route: 050
     Dates: start: 20100729, end: 20100730
  5. ITRIZOLE [Concomitant]
     Dosage: 200MG/20ML
     Route: 048
     Dates: start: 20100730, end: 20100804
  6. BACTRIM [Concomitant]
     Dosage: 1 T
     Route: 048
     Dates: start: 20100730, end: 20100803
  7. LASIX [Concomitant]
     Route: 065
  8. REVLIMID [Suspect]
     Indication: MULTIPLE MYELOMA
     Route: 048
     Dates: start: 20100730, end: 20100803
  9. HYPEN [Concomitant]
     Route: 048
     Dates: start: 20100729, end: 20100804
  10. LENADEX [Suspect]
     Indication: MULTIPLE MYELOMA
     Route: 048
     Dates: start: 20100730, end: 20100730
  11. OMEPRAL [Concomitant]
     Route: 048
     Dates: start: 20100729, end: 20100804
  12. METHYLCOBAL [Concomitant]
     Route: 048
     Dates: start: 20100729, end: 20100804
  13. GABAPENTIN [Concomitant]
     Route: 048
     Dates: start: 20100729, end: 20100804

REACTIONS (1)
  - PNEUMONIA [None]
